FAERS Safety Report 24244939 (Version 2)
Quarter: 2024Q3

REPORT INFORMATION
  Report Type: Spontaneous
  Country: CH (occurrence: CH)
  Receive Date: 20240823
  Receipt Date: 20240827
  Transmission Date: 20241016
  Serious: Yes (Other)
  Sender: ELI LILLY AND CO
  Company Number: CH-ELI_LILLY_AND_COMPANY-CH202407011567

PATIENT
  Age: 55 Year
  Sex: Male

DRUGS (4)
  1. OMVOH [Suspect]
     Active Substance: MIRIKIZUMAB-MRKZ
     Indication: Colitis ulcerative
     Dosage: 300 MG, MONTHLY (1/M)
     Route: 042
     Dates: start: 20240426, end: 20240624
  2. PREDNISOLONE [Concomitant]
     Active Substance: PREDNISOLONE
     Indication: Product used for unknown indication
     Dosage: UNK UNK, UNKNOWN, SINCE 16 YEARS OF AGE
     Route: 065
  3. PREDNISOLONE [Concomitant]
     Active Substance: PREDNISOLONE
     Dosage: 15 MG, UNKNOWN
     Route: 065
  4. BUDESONIDE [Concomitant]
     Active Substance: BUDESONIDE
     Indication: Product used for unknown indication
     Dosage: UNK UNK, UNKNOWN
     Route: 065

REACTIONS (6)
  - Gamma-glutamyltransferase increased [Recovering/Resolving]
  - Blood creatinine increased [Recovering/Resolving]
  - Blood alkaline phosphatase increased [Recovering/Resolving]
  - C-reactive protein increased [Recovering/Resolving]
  - Aspartate aminotransferase increased [Recovering/Resolving]
  - Alanine aminotransferase increased [Recovering/Resolving]

NARRATIVE: CASE EVENT DATE: 20240507
